FAERS Safety Report 22867110 (Version 4)
Quarter: 2024Q1

REPORT INFORMATION
  Report Type: Report from Study
  Country: US (occurrence: US)
  Receive Date: 20230825
  Receipt Date: 20240313
  Transmission Date: 20240409
  Serious: Yes (Hospitalization, Other)
  Sender: FDA-Public Use
  Company Number: US-ARGENX-2023-ARGX-US001452

PATIENT

DRUGS (1)
  1. VYVGART [Suspect]
     Active Substance: EFGARTIGIMOD ALFA-FCAB
     Indication: Myasthenia gravis
     Dosage: 10 MG/KG
     Route: 042
     Dates: start: 20230405

REACTIONS (18)
  - Myasthenia gravis crisis [Unknown]
  - Hypopnoea [Unknown]
  - Chronic kidney disease [Unknown]
  - Therapeutic product effect decreased [Unknown]
  - Symptom recurrence [Unknown]
  - Myasthenia gravis [Unknown]
  - Nasal congestion [Unknown]
  - Throat irritation [Unknown]
  - Product storage error [Unknown]
  - Renal function test abnormal [Unknown]
  - Asthma [Unknown]
  - Hyperparathyroidism [Unknown]
  - Joint swelling [Unknown]
  - Peripheral swelling [Unknown]
  - Pharyngeal swelling [Unknown]
  - Malaise [Unknown]
  - Myasthenia gravis [Unknown]
  - Therapeutic response shortened [Unknown]

NARRATIVE: CASE EVENT DATE: 20231119
